FAERS Safety Report 11167006 (Version 1)
Quarter: 2015Q2

REPORT INFORMATION
  Report Type: Spontaneous
  Country: TR (occurrence: None)
  Receive Date: 20150603
  Receipt Date: 20150603
  Transmission Date: 20150821
  Serious: Yes (Other)
  Sender: FDA-Public Use
  Company Number: TR-2015VAL000363

PATIENT
  Age: 25 Year
  Sex: Female

DRUGS (1)
  1. METOPROLOL TARTRATE (METOPROLOL TARTRATE) UNKNOWN [Suspect]
     Active Substance: METOPROLOL TARTRATE
     Indication: SUPRAVENTRICULAR TACHYCARDIA

REACTIONS (3)
  - Presyncope [None]
  - Maternal exposure during pregnancy [None]
  - Supraventricular tachycardia [None]
